FAERS Safety Report 17316098 (Version 1)
Quarter: 2020Q1

REPORT INFORMATION
  Report Type: Spontaneous
  Country: IE (occurrence: IE)
  Receive Date: 20200124
  Receipt Date: 20200124
  Transmission Date: 20200409
  Serious: Yes (Life-Threatening, Hospitalization)
  Sender: FDA-Public Use
  Company Number: IE-JACOBUS PHARMACEUTICAL COMPANY, INC.-2079375

PATIENT
  Age: 52 Year
  Sex: Male

DRUGS (4)
  1. DAPSONE. [Suspect]
     Active Substance: DAPSONE
     Indication: ANTIFUNGAL PROPHYLAXIS
  2. LIDOCAINE. [Concomitant]
     Active Substance: LIDOCAINE
  3. AMIODARONE HYDROCHLORIDE. [Concomitant]
     Active Substance: AMIODARONE HYDROCHLORIDE
  4. MEXILITINE [Concomitant]
     Active Substance: MEXILETINE

REACTIONS (1)
  - Ventricular arrhythmia [Recovered/Resolved]
